FAERS Safety Report 10226668 (Version 1)
Quarter: 2014Q2

REPORT INFORMATION
  Report Type: Spontaneous
  Country: US (occurrence: US)
  Receive Date: 20140609
  Receipt Date: 20140609
  Transmission Date: 20141212
  Serious: No
  Sender: FDA-Public Use
  Company Number: US-009507513-1406USA002443

PATIENT
  Age: 63 Year
  Sex: Female

DRUGS (3)
  1. JANUVIA [Suspect]
     Indication: TYPE 2 DIABETES MELLITUS
     Dosage: 100 MG/ ONE TABLET ONCE DAILY
     Route: 048
     Dates: start: 201403
  2. VITAMIN D (UNSPECIFIED) [Concomitant]
  3. METFORMIN [Concomitant]

REACTIONS (11)
  - Night sweats [Not Recovered/Not Resolved]
  - Muscular weakness [Not Recovered/Not Resolved]
  - Grip strength decreased [Not Recovered/Not Resolved]
  - Dizziness postural [Not Recovered/Not Resolved]
  - Confusional state [Not Recovered/Not Resolved]
  - Autophobia [Not Recovered/Not Resolved]
  - Somnolence [Not Recovered/Not Resolved]
  - Irritability [Not Recovered/Not Resolved]
  - Hunger [Not Recovered/Not Resolved]
  - Asthenia [Not Recovered/Not Resolved]
  - Headache [Not Recovered/Not Resolved]
